FAERS Safety Report 17874104 (Version 1)
Quarter: 2020Q2

REPORT INFORMATION
  Report Type: Spontaneous
  Country: US (occurrence: US)
  Receive Date: 20200609
  Receipt Date: 20200609
  Transmission Date: 20200714
  Serious: No
  Sender: FDA-Public Use
  Company Number: US-AUROBINDO-AUR-APL-2019-041482

PATIENT
  Sex: Female

DRUGS (2)
  1. VENLAFAXINE EXTENDED RELEASE CAPSULE [Suspect]
     Active Substance: VENLAFAXINE HYDROCHLORIDE
     Indication: MENOPAUSE
     Dosage: 75 MILLIGRAM, ONCE A DAY
     Route: 048
  2. VENLAFAXINE EXTENDED RELEASE CAPSULE [Suspect]
     Active Substance: VENLAFAXINE HYDROCHLORIDE
     Indication: HOT FLUSH

REACTIONS (1)
  - Product residue present [Unknown]

NARRATIVE: CASE EVENT DATE: 201812
